FAERS Safety Report 6480019-X (Version None)
Quarter: 2009Q4

REPORT INFORMATION
  Report Type: 
  Country: None (occurrence: None)
  Receive Date: 20091208
  Receipt Date: 20091126
  Transmission Date: 20100525
  Serious: Yes (Hospitalization)
  Sender: FDA-Public Use
  Company Number: HK-ROCHE-671636

PATIENT
  Age: 55 Year
  Sex: Female

DRUGS (3)
  1. PEG-INTERFERON ALFA 2A (RO 25-8310) [Suspect]
     Indication: HEPATITIS C
     Route: 058
     Dates: start: 20090610, end: 20091121
  2. RIBAVIRIN [Suspect]
     Indication: HEPATITIS C
     Dosage: FREQUENCY: DAILY
     Route: 048
     Dates: start: 20090610, end: 20090923
  3. RIBAVIRIN [Suspect]
     Dosage: FREQUENCY: DAILY
     Route: 048
     Dates: start: 20090923, end: 20091121

REACTIONS (1)
  - HAEMATURIA [None]
